FAERS Safety Report 17533814 (Version 1)
Quarter: 2020Q1

REPORT INFORMATION
  Report Type: Spontaneous
  Country: US (occurrence: US)
  Receive Date: 20200312
  Receipt Date: 20200312
  Transmission Date: 20200409
  Serious: Yes (Death)
  Sender: FDA-Public Use
  Company Number: None

PATIENT
  Sex: Male

DRUGS (1)
  1. WARFARIN [Suspect]
     Active Substance: WARFARIN
     Route: 048
     Dates: end: 20191230

REACTIONS (8)
  - Unresponsive to stimuli [None]
  - Contusion [None]
  - Vasogenic cerebral oedema [None]
  - Cerebral haemorrhage [None]
  - Skin abrasion [None]
  - Lethargy [None]
  - Fall [None]
  - International normalised ratio increased [None]
